FAERS Safety Report 17733735 (Version 3)
Quarter: 2021Q4

REPORT INFORMATION
  Report Type: Spontaneous
  Country: US (occurrence: None)
  Receive Date: 20200501
  Receipt Date: 20211129
  Transmission Date: 20220303
  Serious: Yes (Other)
  Sender: FDA-Public Use
  Company Number: 2020SE56744

PATIENT
  Age: 46 Year
  Sex: Female
  Weight: 78.5 kg

DRUGS (53)
  1. NEXIUM 24HR [Suspect]
     Active Substance: ESOMEPRAZOLE MAGNESIUM
     Indication: Gastrooesophageal reflux disease
     Route: 048
     Dates: start: 200003, end: 200312
  2. NEXIUM 24HR [Suspect]
     Active Substance: ESOMEPRAZOLE MAGNESIUM
     Indication: Gastrooesophageal reflux disease
     Route: 048
     Dates: start: 2014
  3. NEXIUM [Suspect]
     Active Substance: ESOMEPRAZOLE MAGNESIUM
     Indication: Gastrooesophageal reflux disease
     Route: 048
     Dates: start: 2000, end: 2014
  4. NEXIUM [Suspect]
     Active Substance: ESOMEPRAZOLE MAGNESIUM
     Indication: Gastrooesophageal reflux disease
     Route: 048
     Dates: start: 2000, end: 2014
  5. NEXIUM [Suspect]
     Active Substance: ESOMEPRAZOLE MAGNESIUM
     Indication: Gastrooesophageal reflux disease
     Dosage: GENERIC
     Route: 065
     Dates: start: 2013
  6. OMEPRAZOLE [Suspect]
     Active Substance: OMEPRAZOLE
     Indication: Gastrooesophageal reflux disease
     Dosage: GENERIC
     Route: 065
  7. OMEPRAZOLE [Suspect]
     Active Substance: OMEPRAZOLE
     Indication: Gastrooesophageal reflux disease
     Route: 065
     Dates: start: 20141217
  8. PROTONIX [Suspect]
     Active Substance: PANTOPRAZOLE SODIUM
     Indication: Gastrooesophageal reflux disease
     Route: 065
     Dates: start: 200003, end: 200312
  9. PROTONIX [Suspect]
     Active Substance: PANTOPRAZOLE SODIUM
     Indication: Gastrooesophageal reflux disease
     Route: 065
     Dates: start: 2000, end: 2013
  10. FLUOXETINE [Concomitant]
     Active Substance: FLUOXETINE HYDROCHLORIDE
     Indication: Depression
     Route: 065
     Dates: start: 2016
  11. FUROSEMIDE [Concomitant]
     Active Substance: FUROSEMIDE
     Indication: Renal disorder
     Route: 065
     Dates: start: 2019
  12. MAGNESIUM [Concomitant]
     Active Substance: MAGNESIUM
     Indication: Blood pressure abnormal
     Route: 065
     Dates: start: 2016
  13. SIMVASTATIN [Concomitant]
     Active Substance: SIMVASTATIN
     Indication: Cerebral disorder
     Route: 065
     Dates: start: 2016
  14. TACROLIMUS [Concomitant]
     Active Substance: TACROLIMUS
     Indication: Kidney transplant rejection
     Route: 065
     Dates: start: 2016
  15. TYLENOL [Concomitant]
     Active Substance: ACETAMINOPHEN
     Indication: Pain
     Route: 065
  16. TYLENOL [Concomitant]
     Active Substance: ACETAMINOPHEN
     Indication: Pyrexia
     Route: 065
  17. TYLENOL [Concomitant]
     Active Substance: ACETAMINOPHEN
     Indication: Influenza
     Route: 065
  18. BENADRYL [Concomitant]
     Active Substance: DIPHENHYDRAMINE HYDROCHLORIDE
     Indication: Hypersensitivity
     Route: 065
  19. ALLOPURINOL [Concomitant]
     Active Substance: ALLOPURINOL
  20. ABILIFY [Concomitant]
     Active Substance: ARIPIPRAZOLE
  21. ASPIRIN [Concomitant]
     Active Substance: ASPIRIN
  22. AZITHROMYCIN [Concomitant]
     Active Substance: AZITHROMYCIN
  23. IBUPROFEN [Concomitant]
     Active Substance: IBUPROFEN
  24. PROCAINE [Concomitant]
     Active Substance: PROCAINE
  25. DEXAMETHASONE [Concomitant]
     Active Substance: DEXAMETHASONE
  26. NEURONTIN [Concomitant]
     Active Substance: GABAPENTIN
  27. MARCAINE [Concomitant]
     Active Substance: BUPIVACAINE HYDROCHLORIDE
  28. METRONIDAZOLE [Concomitant]
     Active Substance: METRONIDAZOLE
  29. FLUCONAZOLE [Concomitant]
     Active Substance: FLUCONAZOLE
  30. CITALOPRAM [Concomitant]
     Active Substance: CITALOPRAM HYDROBROMIDE
  31. HEPARIN [Concomitant]
     Active Substance: HEPARIN SODIUM
  32. NORCURON [Concomitant]
     Active Substance: VECURONIUM BROMIDE
  33. ZEMURON [Concomitant]
     Active Substance: ROCURONIUM BROMIDE
  34. FLUTICASONE [Concomitant]
     Active Substance: FLUTICASONE
  35. KETAMINE [Concomitant]
     Active Substance: KETAMINE
  36. SUBLIMAZE [Concomitant]
     Active Substance: FENTANYL CITRATE
  37. CYANOCOBALAMIN [Concomitant]
     Active Substance: CYANOCOBALAMIN
  38. CETIRIZINE HYDROCHLORIDE [Concomitant]
     Active Substance: CETIRIZINE HYDROCHLORIDE
  39. GLIPIZIDE [Concomitant]
     Active Substance: GLIPIZIDE
  40. INSULIN GLARGINE [Concomitant]
     Active Substance: INSULIN GLARGINE
     Dates: start: 20131216
  41. CEFEPIME [Concomitant]
     Active Substance: CEFEPIME HYDROCHLORIDE
     Dates: start: 20131216
  42. METOPROLOL TARTRATE [Concomitant]
     Active Substance: METOPROLOL TARTRATE
     Dates: start: 20141216
  43. PREDNISONE [Concomitant]
     Active Substance: PREDNISONE
     Dates: start: 20141216
  44. ARIPIPRAZOLE [Concomitant]
     Active Substance: ARIPIPRAZOLE
     Dates: start: 20141216
  45. AMLODIPINE [Concomitant]
     Active Substance: AMLODIPINE BESYLATE
     Dates: start: 20151218
  46. METOPROLOL SUCCINATE [Concomitant]
     Active Substance: METOPROLOL SUCCINATE
     Dates: start: 20151218
  47. MINOXIDIL [Concomitant]
     Active Substance: MINOXIDIL
     Dates: start: 20151218
  48. INSULIN ASPART [Concomitant]
     Active Substance: INSULIN ASPART
     Dates: start: 20081224
  49. VALSARTAN [Concomitant]
     Active Substance: VALSARTAN
     Dates: start: 20081224
  50. ZYPREXA [Concomitant]
     Active Substance: OLANZAPINE
     Dates: start: 20081224
  51. PAXIL [Concomitant]
     Active Substance: PAROXETINE HYDROCHLORIDE
     Dates: start: 20081224
  52. DYAZIDE [Concomitant]
     Active Substance: HYDROCHLOROTHIAZIDE\TRIAMTERENE
     Dates: start: 20081224
  53. LIPITOR [Concomitant]
     Active Substance: ATORVASTATIN CALCIUM
     Dates: start: 20081224

REACTIONS (6)
  - Chronic kidney disease [Not Recovered/Not Resolved]
  - Acute kidney injury [Unknown]
  - End stage renal disease [Not Recovered/Not Resolved]
  - Renal failure [Not Recovered/Not Resolved]
  - Renal tubular necrosis [Unknown]
  - Gastrooesophageal reflux disease [Not Recovered/Not Resolved]

NARRATIVE: CASE EVENT DATE: 20040101
